FAERS Safety Report 9027138 (Version 3)
Quarter: 2013Q2

REPORT INFORMATION
  Report Type: Spontaneous
  Country: FR (occurrence: FR)
  Receive Date: 20130123
  Receipt Date: 20130506
  Transmission Date: 20140414
  Serious: Yes (Hospitalization, Other)
  Sender: FDA-Public Use
  Company Number: FR-AMGEN-FRASP2013003943

PATIENT
  Age: 73 Year
  Sex: Female

DRUGS (5)
  1. NEULASTA [Suspect]
     Indication: PRODUCT USED FOR UNKNOWN INDICATION
     Dosage: UNK
  2. TAXOTERE [Concomitant]
     Dosage: UNK
  3. 5-FU                               /00098801/ [Concomitant]
     Indication: BREAST NEOPLASM
     Dosage: UNK
  4. EPIRUBICIN [Concomitant]
     Indication: BREAST NEOPLASM
     Dosage: UNK
  5. CYCLOPHOSPHAMIDE [Concomitant]
     Indication: BREAST NEOPLASM
     Dosage: UNK

REACTIONS (15)
  - Febrile bone marrow aplasia [Unknown]
  - Hyperthermia [Unknown]
  - Chills [Unknown]
  - Diarrhoea [Unknown]
  - Leukopenia [Recovered/Resolved]
  - Anaemia [Recovered/Resolved]
  - Thrombocytopenia [Recovered/Resolved]
  - Renal impairment [Recovered/Resolved]
  - Blood creatinine abnormal [Recovered/Resolved]
  - C-reactive protein increased [Recovered/Resolved]
  - Hypokalaemia [Recovered/Resolved]
  - Blood phosphorus decreased [Recovered/Resolved]
  - Anxiety [Unknown]
  - Febrile neutropenia [Unknown]
  - Adverse event [Unknown]
